FAERS Safety Report 4407124-3 (Version None)
Quarter: 2004Q3

REPORT INFORMATION
  Report Type: 
  Country: None (occurrence: None)
  Receive Date: 20040723
  Receipt Date: 20040723
  Transmission Date: 20050211
  Serious: Yes (Other)
  Sender: FDA-Public Use
  Company Number: None

PATIENT
  Age: 50 Year
  Sex: Female
  Weight: 71.2 kg

DRUGS (4)
  1. ZOLMITRIPTAN [Suspect]
  2. PROPANOLOL HCL [Concomitant]
  3. SERTRALINE HCL [Concomitant]
  4. GABAPENTIN [Concomitant]

REACTIONS (1)
  - OROPHARYNGEAL SWELLING [None]
